FAERS Safety Report 9859793 (Version 1)
Quarter: 2014Q1

REPORT INFORMATION
  Report Type: Spontaneous
  Country: US (occurrence: US)
  Receive Date: 20140131
  Receipt Date: 20140131
  Transmission Date: 20141002
  Serious: No
  Sender: FDA-Public Use
  Company Number: US-PFIZER INC-2014027744

PATIENT
  Age: 66 Year
  Sex: Female
  Weight: 64.85 kg

DRUGS (3)
  1. LEVOXYL [Suspect]
     Indication: THYROID DISORDER
     Dosage: 88 UG, 1X/DAY
     Route: 048
     Dates: end: 2010
  2. LEVOXYL [Suspect]
     Dosage: 100 UG, 1X/DAY
     Route: 048
     Dates: start: 2010, end: 2010
  3. LEVOXYL [Suspect]
     Dosage: 88 UG, 1X/DAY
     Route: 048
     Dates: start: 2010, end: 2014

REACTIONS (2)
  - Malaise [Unknown]
  - Expired drug administered [Unknown]
